FAERS Safety Report 5575999-0 (Version None)
Quarter: 2007Q4

REPORT INFORMATION
  Report Type: 
  Country: None (occurrence: None)
  Receive Date: 20071228
  Receipt Date: 20071220
  Transmission Date: 20080405
  Serious: Yes (Death)
  Sender: FDA-Public Use
  Company Number: PHHO2007CA20996

PATIENT
  Age: 70 Year
  Sex: Male
  Weight: 54 kg

DRUGS (2)
  1. AMN107 [Suspect]
     Indication: CHRONIC MYELOID LEUKAEMIA
     Dosage: 400 MG, UNK
     Route: 048
     Dates: start: 20070627, end: 20071218
  2. LORAZEPAM [Concomitant]

REACTIONS (1)
  - CORONARY ARTERY DISEASE [None]
